FAERS Safety Report 6317686-7 (Version None)
Quarter: 2009Q3

REPORT INFORMATION
  Report Type: 
  Country: None (occurrence: None)
  Receive Date: 20090821
  Receipt Date: 20090813
  Transmission Date: 20100115
  Serious: Yes (Hospitalization)
  Sender: FDA-Public Use
  Company Number: PHEH2009US09378

PATIENT
  Sex: Female

DRUGS (1)
  1. EXJADE [Suspect]
     Dosage: 1875 UNK, QD
     Route: 048
     Dates: start: 20090605, end: 20090726

REACTIONS (3)
  - CATHETER RELATED INFECTION [None]
  - CHILLS [None]
  - PYREXIA [None]
